FAERS Safety Report 25624647 (Version 2)
Quarter: 2025Q3

REPORT INFORMATION
  Report Type: Spontaneous
  Country: JP (occurrence: JP)
  Receive Date: 20250730
  Receipt Date: 20250907
  Transmission Date: 20251020
  Serious: Yes (Other)
  Sender: GLAXOSMITHKLINE
  Company Number: JP-GSKJP-JP2025JPN003966AA

PATIENT
  Age: 33 Year
  Sex: Female
  Weight: 52 kg

DRUGS (13)
  1. BENLYSTA [Suspect]
     Active Substance: BELIMUMAB
     Indication: Systemic lupus erythematosus
  2. BENLYSTA [Suspect]
     Active Substance: BELIMUMAB
     Indication: Lupus nephritis
  3. LANSOPRAZOLE [Concomitant]
     Active Substance: LANSOPRAZOLE
     Indication: Prophylaxis against gastrointestinal ulcer
  4. ZOLPIDEM TARTRATE [Concomitant]
     Active Substance: ZOLPIDEM TARTRATE
     Indication: Insomnia
  5. PREDONINE [Concomitant]
     Active Substance: PREDNISOLONE
     Indication: Lupus nephritis
  6. PREDONINE [Concomitant]
     Active Substance: PREDNISOLONE
     Indication: Systemic lupus erythematosus
  7. SULFAMETHOXAZOLE\TRIMETHOPRIM [Concomitant]
     Active Substance: SULFAMETHOXAZOLE\TRIMETHOPRIM
     Indication: Prophylaxis
  8. ROSUVASTATIN [Concomitant]
     Active Substance: ROSUVASTATIN
     Indication: Dyslipidaemia
  9. PROGRAF [Concomitant]
     Active Substance: TACROLIMUS
     Indication: Lupus nephritis
  10. PROGRAF [Concomitant]
     Active Substance: TACROLIMUS
     Indication: Systemic lupus erythematosus
  11. MIANSERIN [Concomitant]
     Active Substance: MIANSERIN
     Indication: Depression
  12. CELLCEPT [Concomitant]
     Active Substance: MYCOPHENOLATE MOFETIL
     Indication: Lupus nephritis
  13. CELLCEPT [Concomitant]
     Active Substance: MYCOPHENOLATE MOFETIL
     Indication: Systemic lupus erythematosus

REACTIONS (1)
  - Suicidal ideation [Recovering/Resolving]

NARRATIVE: CASE EVENT DATE: 20241123
